FAERS Safety Report 15895450 (Version 1)
Quarter: 2019Q1

REPORT INFORMATION
  Report Type: Spontaneous
  Country: US (occurrence: US)
  Receive Date: 20190131
  Receipt Date: 20190131
  Transmission Date: 20190417
  Serious: No
  Sender: FDA-Public Use
  Company Number: US-SUNOVION-2019SUN000319

PATIENT
  Sex: Female

DRUGS (1)
  1. LATUDA [Suspect]
     Active Substance: LURASIDONE HYDROCHLORIDE
     Dosage: ONE HALF TAB QHS
     Route: 048

REACTIONS (4)
  - Off label use [Unknown]
  - Drug tolerance [Unknown]
  - Weight abnormal [Unknown]
  - Wrong technique in product usage process [Unknown]
